FAERS Safety Report 4992904-6 (Version None)
Quarter: 2006Q2

REPORT INFORMATION
  Report Type: 
  Country: None (occurrence: None)
  Receive Date: 20060504
  Receipt Date: 20060426
  Transmission Date: 20061013
  Serious: Yes (Hospitalization)
  Sender: FDA-Public Use
  Company Number: US-MERCK-0604USA04077

PATIENT
  Age: 19 Year
  Sex: Male
  Weight: 82 kg

DRUGS (4)
  1. VIOXX [Suspect]
     Indication: TENDONITIS
     Route: 048
     Dates: start: 20010101, end: 20040101
  2. VIOXX [Suspect]
     Indication: NEOPLASM
     Route: 048
     Dates: start: 20010101, end: 20040101
  3. INDOMETHACIN [Concomitant]
     Route: 065
  4. BEXTRA [Concomitant]
     Route: 065

REACTIONS (4)
  - CARDIAC MURMUR [None]
  - HAEMATOCHEZIA [None]
  - HYPERTENSION [None]
  - OSTEOMA [None]
